FAERS Safety Report 13054032 (Version 3)
Quarter: 2017Q1

REPORT INFORMATION
  Report Type: Spontaneous
  Country: GB (occurrence: GB)
  Receive Date: 20161222
  Receipt Date: 20170118
  Transmission Date: 20170428
  Serious: Yes (Other)
  Sender: FDA-Public Use
  Company Number: GB-TEVA-721603ACC

PATIENT
  Age: 29 Year
  Sex: Female
  Weight: 83 kg

DRUGS (1)
  1. BECLOMETASONE [Suspect]
     Active Substance: BECLOMETHASONE DIPROPIONATE
     Indication: SEASONAL ALLERGY
     Dosage: 4 DOSAGE FORMS DAILY;
     Route: 055

REACTIONS (2)
  - Chest pain [Recovered/Resolved]
  - Maternal exposure during pregnancy [Unknown]
